FAERS Safety Report 5377931-1 (Version None)
Quarter: 2007Q2

REPORT INFORMATION
  Report Type: 
  Country: None (occurrence: None)
  Receive Date: 20070629
  Receipt Date: 20070618
  Transmission Date: 20071010
  Serious: Yes (Hospitalization, Other)
  Sender: FDA-Public Use
  Company Number: FABR-12036

PATIENT
  Age: 50 Year
  Sex: Male

DRUGS (15)
  1. FABRAZYME [Suspect]
     Indication: FABRY'S DISEASE
     Dosage: 1 MG/KG Q2WKS IV
     Route: 042
     Dates: start: 20060427
  2. COZAAR [Concomitant]
  3. PLAVIX [Concomitant]
  4. TOPROL-XL [Concomitant]
  5. LEXAPRO [Concomitant]
  6. LASIX [Concomitant]
  7. CYCLOSPORINE [Concomitant]
  8. CELLCEPT [Concomitant]
  9. PREDNISONE TAB [Concomitant]
  10. ASPIRIN [Concomitant]
  11. VITAMIN D [Concomitant]
  12. RESTORIL [Concomitant]
  13. COUMADIN [Concomitant]
  14. PHOSPHORUS [Concomitant]
  15. POTASSIUM CHLORIDE [Concomitant]

REACTIONS (7)
  - APHONIA [None]
  - CARPAL TUNNEL SYNDROME [None]
  - CONDITION AGGRAVATED [None]
  - ISCHAEMIC STROKE [None]
  - LIMB INJURY [None]
  - PAIN IN EXTREMITY [None]
  - THROMBOSIS [None]
